FAERS Safety Report 9738724 (Version 2)
Quarter: 2014Q1

REPORT INFORMATION
  Report Type: Spontaneous
  Country: AR (occurrence: AR)
  Receive Date: 20131209
  Receipt Date: 20140228
  Transmission Date: 20141002
  Serious: Yes (Other)
  Sender: FDA-Public Use
  Company Number: AR-AMGEN-ARGSP2013086289

PATIENT
  Age: 82 Year
  Sex: Male

DRUGS (5)
  1. ENBREL [Suspect]
     Indication: ANKYLOSING SPONDYLITIS
     Dosage: 50 MG, WEEKLY
     Route: 065
     Dates: start: 20090423
  2. LEVOTHYROXINE [Concomitant]
     Dosage: 50 MUG, UNK
  3. VITAMINA D3 [Concomitant]
     Dosage: UNK
  4. CALCIUM [Concomitant]
     Dosage: UNK
  5. ZOLEDRONIC ACID [Concomitant]
     Dosage: UNK

REACTIONS (2)
  - Maculopathy [Recovering/Resolving]
  - Visual acuity reduced [Recovering/Resolving]
